FAERS Safety Report 5948350-1 (Version None)
Quarter: 2008Q4

REPORT INFORMATION
  Report Type: 
  Country: None (occurrence: None)
  Receive Date: 20081110
  Receipt Date: 20081110
  Transmission Date: 20090506
  Serious: Yes (Other)
  Sender: FDA-Public Use
  Company Number: None

PATIENT
  Age: 54 Year
  Sex: Female
  Weight: 77.1115 kg

DRUGS (1)
  1. CYMBALTA [Suspect]
     Indication: DEPRESSION POSTOPERATIVE
     Dosage: 90 MG 1 TIME PER DAY PO
     Route: 048
     Dates: start: 20080212, end: 20080226

REACTIONS (2)
  - NIGHTMARE [None]
  - SUICIDAL IDEATION [None]
